FAERS Safety Report 4324630-0 (Version None)
Quarter: 2004Q1

REPORT INFORMATION
  Report Type: 
  Country: None (occurrence: None)
  Receive Date: 20040322
  Receipt Date: 20040309
  Transmission Date: 20041129
  Serious: Yes (Death, Life-Threatening)
  Sender: FDA-Public Use
  Company Number: AU-JNJFOC-20040302931

PATIENT
  Age: 76 Year
  Sex: Female

DRUGS (6)
  1. TRAMAL SR (TRAMADOL HYDROCHLORIDE) UNSPECIFIED [Suspect]
     Indication: PAIN
     Dosage: 200 MG, IN 1 DAY, ORAL
     Route: 048
     Dates: end: 20030224
  2. COLCHICINE (COLCHICINE) [Suspect]
     Indication: GOUT
     Dosage: 750 UG, IN 1 DAY, ORAL
     Route: 048
     Dates: end: 20030224
  3. INDOMETHACIN [Suspect]
     Indication: GOUT
     Dosage: 100 MG, IN 1 DAY, ORAL
     Route: 048
     Dates: start: 20030219, end: 20030224
  4. WARFARIN SODIUM [Suspect]
     Indication: MYOCARDIAL ISCHAEMIA
     Dosage: 2 MG, IN 1 DAY, ORAL
     Route: 048
     Dates: end: 20030224
  5. MORPHINE MIXTURE (MORPHINE HYDROCHLORIDE) [Concomitant]
  6. ACETAMINOPHEN [Concomitant]

REACTIONS (2)
  - HAEMORRHAGIC STROKE [None]
  - SUBARACHNOID HAEMORRHAGE [None]
